FAERS Safety Report 13688753 (Version 1)
Quarter: 2017Q2

REPORT INFORMATION
  Report Type: Report from Study
  Country: US (occurrence: BR)
  Receive Date: 20170626
  Receipt Date: 20170626
  Transmission Date: 20170830
  Serious: Yes (Other)
  Sender: FDA-Public Use
  Company Number: US-SUNOVION-2017SUN002682

PATIENT
  Sex: Female
  Weight: 62 kg

DRUGS (2)
  1. INDACATEROL AND GLYCOPYRROLATE [Suspect]
     Active Substance: GLYCOPYRROLATE\INDACATEROL MALEATE
     Dosage: ULTIBRO BREEZHALER (INDACATEROL GLYCOPYRRONIUM BROMIDE) CAPSULE, 110/50 UGUNK
     Route: 045
  2. INDACATEROL AND GLYCOPYRROLATE [Suspect]
     Active Substance: GLYCOPYRROLATE\INDACATEROL MALEATE
     Indication: LUNG DISORDER
     Dosage: INDACATEROL GLYCOPYRRONIUM BROMIDE CAPSULE, 110/50 UG, 1 DF QD INHALATION
     Route: 055

REACTIONS (11)
  - Fatigue [Unknown]
  - Product use in unapproved indication [Unknown]
  - Dyspnoea [Unknown]
  - Malaise [Unknown]
  - Diabetes mellitus [Unknown]
  - Eye disorder [Unknown]
  - Drug intolerance [Unknown]
  - Heart rate increased [Unknown]
  - Blood glucose increased [Recovering/Resolving]
  - Tachycardia [Unknown]
  - Peripheral swelling [Recovering/Resolving]
